FAERS Safety Report 6269204-X (Version None)
Quarter: 2009Q3

REPORT INFORMATION
  Report Type: 
  Country: None (occurrence: None)
  Receive Date: 20090715
  Receipt Date: 20090709
  Transmission Date: 20100115
  Serious: Yes (Life-Threatening, Hospitalization)
  Sender: FDA-Public Use
  Company Number: US-JNJFOC-20090702935

PATIENT
  Age: 73 Year
  Sex: Female

DRUGS (9)
  1. ULTRAM [Suspect]
     Indication: DRUG USE FOR UNKNOWN INDICATION
     Route: 065
  2. AMITRIPTYLINE [Suspect]
     Indication: DRUG USE FOR UNKNOWN INDICATION
     Route: 065
  3. TRICYCLIC ANTIDEPRESSANT [Suspect]
     Indication: DRUG USE FOR UNKNOWN INDICATION
     Route: 065
  4. VALPROIC ACID [Concomitant]
     Route: 065
  5. FUROSEMIDE [Concomitant]
  6. THYROID PREPARATIONS [Concomitant]
  7. TAMOXIFEN CITRATE [Concomitant]
  8. PROTON PUMP INHIBITOR [Concomitant]
  9. LIPID LOWERING AGENT [Concomitant]

REACTIONS (8)
  - ABDOMINAL DISCOMFORT [None]
  - ANTIDEPRESSANT DRUG LEVEL INCREASED [None]
  - BLOOD PRESSURE DIASTOLIC DECREASED [None]
  - CONFUSIONAL STATE [None]
  - DEPRESSED LEVEL OF CONSCIOUSNESS [None]
  - DIARRHOEA [None]
  - ELECTROCARDIOGRAM QT PROLONGED [None]
  - INCORRECT DOSE ADMINISTERED [None]
